FAERS Safety Report 8097881-X (Version None)
Quarter: 2012Q1

REPORT INFORMATION
  Report Type: 
  Country: None (occurrence: None)
  Receive Date: 20120128
  Receipt Date: 20110815
  Transmission Date: 20120608
  Serious: No
  Sender: FDA-Public Use
  Company Number: US-ABBOTT-11P-163-0846635-00

PATIENT
  Age: 60 Year
  Sex: Female

DRUGS (8)
  1. MELOXICAM [Concomitant]
     Dosage: DAILY
  2. UNKNOWN DIETARY SUPPLEMENT [Concomitant]
     Indication: PRODUCT USED FOR UNKNOWN INDICATION
  3. HUMIRA [Suspect]
     Indication: PSORIASIS
     Dates: start: 20101001
  4. SIMVASTATIN [Concomitant]
     Indication: BLOOD CHOLESTEROL
     Route: 048
  5. FOLIC ACID [Concomitant]
     Indication: PRODUCT USED FOR UNKNOWN INDICATION
     Route: 048
     Dates: start: 20110101
  6. PROBIOTIC [Concomitant]
     Indication: PRODUCT USED FOR UNKNOWN INDICATION
     Dosage: 1 DAILY
     Route: 048
  7. MELOXICAM [Concomitant]
     Indication: ARTHRALGIA
     Dates: start: 20101001
  8. METHOTREXATE [Concomitant]
     Indication: PSORIASIS
     Dosage: 12 HOUR INTERVAL FOR 3 DOSES EVERY WEEK
     Route: 048
     Dates: start: 20110101

REACTIONS (2)
  - INJECTION SITE PAIN [None]
  - PSORIASIS [None]
